FAERS Safety Report 5761280-3 (Version None)
Quarter: 2008Q2

REPORT INFORMATION
  Report Type: 
  Country: None (occurrence: None)
  Receive Date: 20080606
  Receipt Date: 20080605
  Transmission Date: 20081010
  Serious: Yes (Death)
  Sender: FDA-Public Use
  Company Number: US-ASTRAZENECA-2008UW11338

PATIENT

DRUGS (2)
  1. SEROQUEL [Suspect]
     Route: 048
  2. METHADONE HCL [Suspect]

REACTIONS (2)
  - ARRHYTHMIA [None]
  - OVERDOSE [None]
